FAERS Safety Report 14180926 (Version 1)
Quarter: 2017Q4

REPORT INFORMATION
  Report Type: Spontaneous
  Country: US (occurrence: US)
  Receive Date: 20171110
  Receipt Date: 20171110
  Transmission Date: 20180321
  Serious: No
  Sender: FDA-Public Use
  Company Number: None

PATIENT
  Age: 58 Year
  Sex: Male
  Weight: 81.45 kg

DRUGS (4)
  1. MOVANTIK [Concomitant]
     Active Substance: NALOXEGOL OXALATE
  2. SUBSYS [Suspect]
     Active Substance: FENTANYL
     Indication: CANCER PAIN
     Route: 060
     Dates: start: 20171107, end: 20171108
  3. DILAUDID [Concomitant]
     Active Substance: HYDROMORPHONE HYDROCHLORIDE
  4. OXYCONTIN [Concomitant]
     Active Substance: OXYCODONE HYDROCHLORIDE

REACTIONS (4)
  - Vomiting [None]
  - Headache [None]
  - Nausea [None]
  - Dyspnoea [None]

NARRATIVE: CASE EVENT DATE: 20171107
